FAERS Safety Report 18299868 (Version 1)
Quarter: 2020Q3

REPORT INFORMATION
  Report Type: Spontaneous
  Country: GR (occurrence: GR)
  Receive Date: 20200922
  Receipt Date: 20200922
  Transmission Date: 20201103
  Serious: Yes (Other)
  Sender: FDA-Public Use
  Company Number: GR-ASTRAZENECA-2020SF19148

PATIENT
  Age: 67 Year
  Sex: Male

DRUGS (2)
  1. FORXIGA [Suspect]
     Active Substance: DAPAGLIFLOZIN
     Indication: TYPE 2 DIABETES MELLITUS
     Route: 048
     Dates: start: 201907
  2. EUCREAS [Concomitant]
     Active Substance: METFORMIN HYDROCHLORIDE\VILDAGLIPTIN
     Dosage: (50+1000) MG

REACTIONS (6)
  - Albumin urine present [Unknown]
  - Blood urine present [Unknown]
  - Urine ketone body present [Unknown]
  - Glucose urine present [Unknown]
  - Serum ferritin increased [Unknown]
  - Urine calcium increased [Unknown]
